FAERS Safety Report 8163132-0 (Version None)
Quarter: 2012Q1

REPORT INFORMATION
  Report Type: 
  Country: None (occurrence: None)
  Receive Date: 20120224
  Receipt Date: 20110610
  Transmission Date: 20120608
  Serious: No
  Sender: FDA-Public Use
  Company Number: US-PFIZER INC-K201100721

PATIENT
  Sex: Female
  Weight: 127.89 kg

DRUGS (1)
  1. FLECTOR [Suspect]
     Indication: ARTHRALGIA
     Dosage: 1 PATCH, SINGLE
     Route: 061
     Dates: start: 20110101, end: 20110101

REACTIONS (8)
  - OROPHARYNGEAL BLISTERING [None]
  - CONFUSIONAL STATE [None]
  - HYPERSENSITIVITY [None]
  - URTICARIA [None]
  - APPLICATION SITE PAIN [None]
  - APPLICATION SITE RASH [None]
  - APPLICATION SITE OEDEMA [None]
  - PHARYNGEAL OEDEMA [None]
